FAERS Safety Report 6637067-6 (Version None)
Quarter: 2010Q1

REPORT INFORMATION
  Report Type: 
  Country: None (occurrence: None)
  Receive Date: 20100316
  Receipt Date: 20100308
  Transmission Date: 20100710
  Serious: Yes (Other)
  Sender: FDA-Public Use
  Company Number: US-AMGEN-QUU398162

PATIENT
  Sex: Female

DRUGS (2)
  1. NEULASTA [Suspect]
     Indication: CHEMOTHERAPY
     Route: 065
  2. UNSPECIFIED ANTINEOPLASTIC AGENT [Concomitant]

REACTIONS (6)
  - BLOOD COUNT ABNORMAL [None]
  - BONE PAIN [None]
  - METASTASES TO LUNG [None]
  - OVARIAN CANCER [None]
  - PAIN [None]
  - UTERINE CANCER [None]
